FAERS Safety Report 21834759 (Version 1)
Quarter: 2023Q1

REPORT INFORMATION
  Report Type: Spontaneous
  Country: US (occurrence: None)
  Receive Date: 20230108
  Receipt Date: 20230108
  Transmission Date: 20230417
  Serious: No
  Sender: FDA-Public Use
  Company Number: US-ROCHE-3133658

PATIENT
  Age: 24 Year
  Sex: Male

DRUGS (3)
  1. HEMLIBRA [Suspect]
     Active Substance: EMICIZUMAB-KXWH
     Indication: Complement factor abnormal
     Dosage: 105MG/0.7ML
     Route: 058
     Dates: start: 202206
  2. HEMLIBRA [Suspect]
     Active Substance: EMICIZUMAB-KXWH
     Dosage: 60MG/0.4ML
     Route: 058
     Dates: start: 202206
  3. AFSTYLA ANTIHEMOPHILIC FACTOR (RECOMBINANT), SINGLE CHAIN [Concomitant]
     Active Substance: ANTIHEMOPHILIC FACTOR, HUMAN RECOMBINANT
     Indication: Intermenstrual bleeding
     Dosage: INFUSE 3500 UNITS (3150-3850) SLOW IV PUSH
     Route: 042

REACTIONS (2)
  - Gastric infection [Unknown]
  - Off label use [Unknown]

NARRATIVE: CASE EVENT DATE: 20220625
